FAERS Safety Report 4749238-4 (Version None)
Quarter: 2005Q3

REPORT INFORMATION
  Report Type: 
  Country: None (occurrence: None)
  Receive Date: 20050812
  Receipt Date: 20050427
  Transmission Date: 20060218
  Serious: Yes (Other)
  Sender: FDA-Public Use
  Company Number: 403600

PATIENT
  Age: 44 Year
  Sex: Female

DRUGS (2)
  1. PEGASYS [Suspect]
     Indication: HEPATITIS C VIRUS
     Dosage: SUBCUTANEOUS
     Route: 058
     Dates: start: 20041111
  2. COPEGUS [Suspect]
     Indication: HEPATITIS C VIRUS
     Dosage: ORAL
     Route: 048
     Dates: start: 20041111

REACTIONS (24)
  - ANOREXIA [None]
  - BALANCE DISORDER [None]
  - DEPRESSION [None]
  - DISEASE RECURRENCE [None]
  - EPISTAXIS [None]
  - FACIAL PAIN [None]
  - FATIGUE [None]
  - HAEMOGLOBIN DECREASED [None]
  - INCREASED TENDENCY TO BRUISE [None]
  - LARYNGITIS [None]
  - NASAL SEPTUM PERFORATION [None]
  - NASAL ULCER [None]
  - NAUSEA [None]
  - NEUTROPHIL COUNT DECREASED [None]
  - ORAL PAIN [None]
  - PAIN [None]
  - PLATELET COUNT DECREASED [None]
  - PYREXIA [None]
  - RHINALGIA [None]
  - RHINITIS [None]
  - SINUS HEADACHE [None]
  - SINUSITIS [None]
  - WEIGHT DECREASED [None]
  - WHITE BLOOD CELL COUNT DECREASED [None]
